FAERS Safety Report 11199418 (Version 2)
Quarter: 2016Q3

REPORT INFORMATION
  Report Type: Report from Study
  Country: US (occurrence: US)
  Receive Date: 20150618
  Receipt Date: 20160902
  Transmission Date: 20161109
  Serious: Yes (Death, Other)
  Sender: FDA-Public Use
  Company Number: US-ARIAD-2015US005083

PATIENT

DRUGS (1)
  1. ICLUSIG [Suspect]
     Active Substance: PONATINIB
     Indication: BLAST CRISIS IN MYELOGENOUS LEUKAEMIA
     Dosage: 45 MG, QD
     Route: 048

REACTIONS (6)
  - Blast crisis in myelogenous leukaemia [Fatal]
  - Pancytopenia [Unknown]
  - Neutropenia [Unknown]
  - Enterobacter sepsis [Fatal]
  - Transaminases increased [Unknown]
  - Rash [Unknown]
